FAERS Safety Report 8966143 (Version 1)
Quarter: 2012Q4

REPORT INFORMATION
  Report Type: 
  Country: BR (occurrence: BR)
  Receive Date: 20121217
  Receipt Date: 20121217
  Transmission Date: 20130627
  Serious: Yes (Other)
  Sender: FDA-Public Use
  Company Number: BR-ASTRAZENECA-2012SE18195

PATIENT
  Age: 61 Year
  Sex: Male

DRUGS (3)
  1. CRESTOR [Suspect]
     Route: 048
  2. CRESTOR [Suspect]
     Route: 048
     Dates: start: 201112, end: 20121206
  3. CRESTOR [Suspect]
     Route: 048

REACTIONS (2)
  - Ischaemia [Unknown]
  - Blood cholesterol increased [Unknown]
